FAERS Safety Report 25258734 (Version 1)
Quarter: 2025Q2

REPORT INFORMATION
  Report Type: Spontaneous
  Country: US (occurrence: US)
  Receive Date: 20250501
  Receipt Date: 20250501
  Transmission Date: 20250717
  Serious: Yes (Death)
  Sender: KINDEVA DRUG DELIVERY L.P.
  Company Number: US-Kindeva Drug Delivery L.P.-2175923

PATIENT
  Age: 19 Year
  Sex: Female

DRUGS (3)
  1. SEIZALAM [Suspect]
     Active Substance: MIDAZOLAM HYDROCHLORIDE
  2. MORPHINE [Suspect]
     Active Substance: MORPHINE
  3. PRECEDEX [Suspect]
     Active Substance: DEXMEDETOMIDINE HYDROCHLORIDE

REACTIONS (3)
  - Hypothermia [Fatal]
  - Respiratory arrest [Fatal]
  - Sedation complication [Fatal]
